FAERS Safety Report 11428479 (Version 1)
Quarter: 2015Q3

REPORT INFORMATION
  Report Type: Spontaneous
  Country: US (occurrence: None)
  Receive Date: 20150827
  Receipt Date: 20150827
  Transmission Date: 20151125
  Serious: No
  Sender: FDA-Public Use
  Company Number: None

PATIENT
  Age: 53 Year
  Sex: Female
  Weight: 136.08 kg

DRUGS (11)
  1. HUMIRA [Suspect]
     Active Substance: ADALIMUMAB
     Indication: PSORIATIC ARTHROPATHY
     Dosage: 1 INJECTION EVERY 10 DAYS GIVEN INTO/UNDER THE SKIN
     Route: 058
     Dates: start: 201310
  2. DOXEPIN [Concomitant]
     Active Substance: DOXEPIN
  3. LISINOPRIL. [Concomitant]
     Active Substance: LISINOPRIL
  4. CURCUMIN [Concomitant]
     Active Substance: CURCUMIN
  5. PROMETRIUM [Concomitant]
     Active Substance: PROGESTERONE
  6. KRILL OIL [Concomitant]
     Active Substance: DIETARY SUPPLEMENT
  7. VISTARIL [Concomitant]
     Active Substance: HYDROXYZINE PAMOATE
  8. TURMERIC [Concomitant]
     Active Substance: TURMERIC
  9. KEFLEX [Concomitant]
     Active Substance: CEPHALEXIN
  10. PREDNISONE. [Concomitant]
     Active Substance: PREDNISONE
  11. VITAMIN D3 [Concomitant]
     Active Substance: CHOLECALCIFEROL

REACTIONS (2)
  - Pruritus [None]
  - Skin disorder [None]

NARRATIVE: CASE EVENT DATE: 20150818
